FAERS Safety Report 11228590 (Version 1)
Quarter: 2015Q2

REPORT INFORMATION
  Report Type: Spontaneous
  Country: FR (occurrence: None)
  Receive Date: 20150626
  Receipt Date: 20150626
  Transmission Date: 20150821
  Serious: Yes (Other)
  Sender: FDA-Public Use
  Company Number: DEP_03073_2015

PATIENT
  Age: 47 Year
  Sex: Female

DRUGS (8)
  1. PARACETAMOL [Concomitant]
     Active Substance: ACETAMINOPHEN
  2. GABAPENTIN (GABAPENTIN) [Suspect]
     Active Substance: GABAPENTIN
     Indication: PRODUCT USED FOR UNKNOWN INDICATION
     Dosage: DF
  3. IBUPROFEN. [Concomitant]
     Active Substance: IBUPROFEN
  4. TETRAZEPAM [Concomitant]
     Active Substance: TETRAZEPAM
  5. FLUOXETINE [Concomitant]
     Active Substance: FLUOXETINE\FLUOXETINE HYDROCHLORIDE
  6. HYDROXYCHLOROQUINE [Concomitant]
     Active Substance: HYDROXYCHLOROQUINE
  7. OPIUM [Concomitant]
     Active Substance: OPIUM
  8. CAFEINE [Concomitant]
     Active Substance: CAFFEINE

REACTIONS (1)
  - Hepatitis [None]

NARRATIVE: CASE EVENT DATE: 2001
